FAERS Safety Report 16937556 (Version 1)
Quarter: 2019Q4

REPORT INFORMATION
  Report Type: Report from Study
  Country: None (occurrence: ZA)
  Receive Date: 20191018
  Receipt Date: 20191018
  Transmission Date: 20200122
  Serious: Yes (Other)
  Sender: FDA-Public Use
  Company Number: ZA-ABBVIE-19K-143-2970174-00

PATIENT
  Sex: Male

DRUGS (2)
  1. HUMIRA [Suspect]
     Active Substance: ADALIMUMAB
     Indication: CROHN^S DISEASE
     Dosage: WK0=160MG,
     Route: 058
     Dates: start: 20190920, end: 20190920
  2. HUMIRA [Suspect]
     Active Substance: ADALIMUMAB
     Dosage: WK2=80MG;
     Route: 058
     Dates: start: 201910, end: 201910

REACTIONS (1)
  - Blindness [Recovering/Resolving]

NARRATIVE: CASE EVENT DATE: 2019
